FAERS Safety Report 17605415 (Version 1)
Quarter: 2020Q1

REPORT INFORMATION
  Report Type: Spontaneous
  Country: NL (occurrence: NL)
  Receive Date: 20200331
  Receipt Date: 20200331
  Transmission Date: 20200409
  Serious: Yes (Other)
  Sender: FDA-Public Use
  Company Number: NL-MYLANLABS-2020M1033447

PATIENT
  Age: 62 Year
  Sex: Female

DRUGS (5)
  1. PREDNISONE. [Suspect]
     Active Substance: PREDNISONE
     Indication: SCLERITIS
     Dosage: 30 MILLIGRAM, QD
     Route: 065
  2. PREDNISONE. [Suspect]
     Active Substance: PREDNISONE
     Dosage: 60 MILLIGRAM, QD
     Route: 065
  3. PREDNISONE. [Suspect]
     Active Substance: PREDNISONE
     Dosage: CONTINUED WITH TOCILIZUMAB, AND SLOWLY TAPERED WITHIN THREE MONTHS
     Route: 065
  4. CYCLOSPORINE. [Concomitant]
     Active Substance: CYCLOSPORINE
     Indication: ARTHRALGIA
     Route: 061
  5. PREDNISONE. [Suspect]
     Active Substance: PREDNISONE
     Dosage: GRADUAL WITHDRAWAL OF PREDNISONE AT THE DOSAGE BELOW 40 MG/DAY
     Route: 065

REACTIONS (2)
  - Rebound effect [Recovered/Resolved]
  - Scleritis [Recovered/Resolved]
